FAERS Safety Report 24384126 (Version 1)
Quarter: 2024Q4

REPORT INFORMATION
  Report Type: Spontaneous
  Country: DE (occurrence: DE)
  Receive Date: 20241001
  Receipt Date: 20241001
  Transmission Date: 20250115
  Serious: Yes (Hospitalization, Other)
  Sender: AUROBINDO
  Company Number: DE-002147023-NVSC2023DE238123

PATIENT
  Sex: Female
  Weight: 60 kg

DRUGS (11)
  1. FULVESTRANT [Suspect]
     Active Substance: FULVESTRANT
     Indication: Hormone receptor positive HER2 negative breast cancer
     Dosage: 500 MILLIGRAM [500 MG, Q4W (DAILY DOSE)]
     Route: 030
     Dates: start: 20200602, end: 20231114
  2. FULVESTRANT [Suspect]
     Active Substance: FULVESTRANT
     Dosage: 500 MILLIGRAM [500 MG, Q4W (DAILY DOSE)]
     Route: 030
     Dates: start: 20240227
  3. XGEVA [Suspect]
     Active Substance: DENOSUMAB
     Indication: Product used for unknown indication
     Dosage: 120 MILLIGRAM (120 MG)
     Route: 058
     Dates: start: 20200602, end: 20231019
  4. KISQALI [Suspect]
     Active Substance: RIBOCICLIB
     Indication: Hormone receptor positive HER2 negative breast cancer
     Dosage: 600 MILLIGRAM, ONCE A DAY [600 MG, QD (SCHEMA 21 DAYS INTAKE, 7 DAYS PAUSE)]
     Route: 048
     Dates: start: 20200605, end: 20201112
  5. KISQALI [Suspect]
     Active Substance: RIBOCICLIB
     Dosage: 600 MILLIGRAM, ONCE A DAY [600 MG, QD (SCHEMA 21 DAYS INTAKE, 7 DAYS PAUSE)]
     Route: 048
     Dates: start: 20210226, end: 20210325
  6. KISQALI [Suspect]
     Active Substance: RIBOCICLIB
     Dosage: 600 MILLIGRAM, ONCE A DAY [600 MG, QD (SCHEMA 21 DAYS INTAKE, 7 DAYS PAUSE)]
     Route: 048
     Dates: start: 20210402, end: 20210429
  7. KISQALI [Suspect]
     Active Substance: RIBOCICLIB
     Dosage: 600 MILLIGRAM, ONCE A DAY [600 MG, QD (SCHEMA 21 DAYS INTAKE, 7 DAYS PAUSE)]
     Route: 048
     Dates: start: 20210618, end: 20210715
  8. KISQALI [Suspect]
     Active Substance: RIBOCICLIB
     Dosage: 400 MILLIGRAM, ONCE A DAY [400 MG, QD (SCHEMA 21 DAYS INTAKE, 7 DAYS PAUSE)]
     Route: 048
     Dates: start: 20210730, end: 20230209
  9. KISQALI [Suspect]
     Active Substance: RIBOCICLIB
     Dosage: 400 MILLIGRAM, ONCE A DAY [400 MG, QD (SCHEMA 21 DAYS INTAKE, 7 DAYS PAUSE)]
     Route: 048
     Dates: start: 20230224, end: 20231102
  10. KISQALI [Suspect]
     Active Substance: RIBOCICLIB
     Dosage: 400 MILLIGRAM, ONCE A DAY [400 MG, QD (SCHEMA 21 DAYS INTAKE, 7 DAYS PAUSE)]
     Route: 048
     Dates: start: 20231107, end: 20231204
  11. KISQALI [Suspect]
     Active Substance: RIBOCICLIB
     Dosage: 400 MILLIGRAM, ONCE A DAY [400 MG, QD (SCHEMA 21 DAYS INTAKE, 7 DAYS PAUSE)]
     Route: 048
     Dates: start: 20240427

REACTIONS (3)
  - Osteonecrosis of jaw [Recovered/Resolved]
  - Nasopharyngitis [Recovered/Resolved]
  - Rash [Recovered/Resolved]

NARRATIVE: CASE EVENT DATE: 20231020
